FAERS Safety Report 18390146 (Version 1)
Quarter: 2020Q4

REPORT INFORMATION
  Report Type: Report from Study
  Country: US (occurrence: US)
  Receive Date: 20201016
  Receipt Date: 20201016
  Transmission Date: 20210114
  Serious: Yes (Hospitalization)
  Sender: FDA-Public Use
  Company Number: US-HBP-2020US021139

PATIENT
  Sex: Female

DRUGS (7)
  1. ALLOPURINOL. [Concomitant]
     Active Substance: ALLOPURINOL
  2. GLIPIZIDE. [Concomitant]
     Active Substance: GLIPIZIDE
  3. LASIX [Concomitant]
     Active Substance: FUROSEMIDE
  4. VALCHLOR [Suspect]
     Active Substance: MECHLORETHAMINE
     Indication: CUTANEOUS T-CELL LYMPHOMA
     Dosage: UNK, QD
     Route: 061
  5. LOSARTAN POTASSIUM. [Concomitant]
     Active Substance: LOSARTAN POTASSIUM
  6. NOVOLOG [Concomitant]
     Active Substance: INSULIN ASPART
  7. PANTOPRAZOLE SODIUM. [Concomitant]
     Active Substance: PANTOPRAZOLE SODIUM

REACTIONS (7)
  - Application site swelling [Unknown]
  - Viral infection [Unknown]
  - Ill-defined disorder [Unknown]
  - Chest pain [Unknown]
  - Application site discolouration [Unknown]
  - Discomfort [Unknown]
  - Headache [Unknown]
